FAERS Safety Report 8461584-X (Version None)
Quarter: 2012Q2

REPORT INFORMATION
  Report Type: 
  Country: None (occurrence: None)
  Receive Date: 20120625
  Receipt Date: 20120618
  Transmission Date: 20120825
  Serious: Yes (Hospitalization, Other)
  Sender: FDA-Public Use
  Company Number: PHHY2012MX053231

PATIENT
  Sex: Female

DRUGS (3)
  1. FORADIL [Suspect]
     Indication: ASTHMA
     Dosage: 2 DF, QD
     Dates: start: 20111201
  2. COMBIVENT [Concomitant]
     Indication: ASTHMA
     Dosage: 2APPLICATIONS DAILY
     Dates: start: 20111201
  3. OMEPRAZOLE [Concomitant]
     Indication: GASTRITIS
     Dosage: 3 DF, QD
     Dates: start: 20100201

REACTIONS (7)
  - ASTHMA [None]
  - NAUSEA [None]
  - CONVULSION [None]
  - FAECAL INCONTINENCE [None]
  - FEELING OF DESPAIR [None]
  - LOSS OF CONSCIOUSNESS [None]
  - DEPRESSION [None]
